FAERS Safety Report 15234973 (Version 2)
Quarter: 2019Q3

REPORT INFORMATION
  Report Type: Spontaneous
  Country: US (occurrence: US)
  Receive Date: 20180803
  Receipt Date: 20190927
  Transmission Date: 20191004
  Serious: Yes (Hospitalization, Other)
  Sender: FDA-Public Use
  Company Number: US-APOTEX-2018AP018460

PATIENT
  Age: 17 Year
  Sex: Male

DRUGS (2)
  1. GUANFACINE. [Suspect]
     Active Substance: GUANFACINE
     Indication: SUICIDE ATTEMPT
     Dosage: 63 DF, 189 MG TOTAL
     Route: 048
  2. OLANZAPINE. [Suspect]
     Active Substance: OLANZAPINE
     Indication: SUICIDE ATTEMPT
     Dosage: 68 DF, 340 MG TOTAL
     Route: 048

REACTIONS (11)
  - Hallucination, visual [Recovered/Resolved]
  - Bradycardia [Recovered/Resolved]
  - Dysarthria [Recovering/Resolving]
  - Intentional overdose [Unknown]
  - Consciousness fluctuating [Recovered/Resolved]
  - Hypotension [Recovered/Resolved]
  - Orthostatic hypotension [Recovered/Resolved]
  - Suicide attempt [Unknown]
  - Presyncope [Unknown]
  - Sinus arrest [Recovered/Resolved]
  - Agitation [Recovered/Resolved]
